FAERS Safety Report 5332984-1 (Version None)
Quarter: 2007Q2

REPORT INFORMATION
  Report Type: 
  Country: None (occurrence: None)
  Receive Date: 20070306
  Receipt Date: 20060920
  Transmission Date: 20071010
  Serious: Yes (Hospitalization, Disabling)
  Sender: FDA-Public Use
  Company Number: A03200503771

PATIENT
  Age: 63 Year
  Sex: Male

DRUGS (11)
  1. PLAVIX [Suspect]
     Indication: CARDIOVASCULAR DISORDER
     Dosage: 75 MG QD - ORAL
     Route: 048
     Dates: start: 20040720, end: 20040817
  2. PLAVIX [Suspect]
     Indication: PAIN IN EXTREMITY
     Dosage: 75 MG QD - ORAL
     Route: 048
     Dates: start: 20040720, end: 20040817
  3. CECLOR [Suspect]
     Indication: NAIL INFECTION
     Dates: start: 20040817, end: 20040817
  4. LOSARTAN + HCTZ [Concomitant]
  5. DOXAZOSIN MESYLATE [Concomitant]
  6. VANQUISH [Concomitant]
  7. SULINDAC [Concomitant]
  8. RANITIDINE HYDROCHLORIDE [Concomitant]
  9. EXCEDRIN [Concomitant]
  10. CETIRIZINE+PSEUDOEPHEDRINE [Concomitant]
  11. TOLTERODINE TARTRATE [Concomitant]

REACTIONS (13)
  - ACUTE RESPIRATORY FAILURE [None]
  - AGITATION [None]
  - ARTHRALGIA [None]
  - CONFUSIONAL STATE [None]
  - COORDINATION ABNORMAL [None]
  - DEAFNESS [None]
  - EMOTIONAL DISTRESS [None]
  - FATIGUE [None]
  - MENTAL STATUS CHANGES [None]
  - NERVE INJURY [None]
  - OSTEOARTHRITIS [None]
  - RENAL FAILURE ACUTE [None]
  - THROMBOTIC THROMBOCYTOPENIC PURPURA [None]
